FAERS Safety Report 14219314 (Version 1)
Quarter: 2017Q4

REPORT INFORMATION
  Report Type: Spontaneous
  Country: US (occurrence: US)
  Receive Date: 20171123
  Receipt Date: 20171123
  Transmission Date: 20180321
  Serious: No
  Sender: FDA-Public Use
  Company Number: US-JNJFOC-20171013914

PATIENT

DRUGS (1)
  1. INVOKANA [Suspect]
     Active Substance: CANAGLIFLOZIN
     Indication: PRODUCT USED FOR UNKNOWN INDICATION
     Dosage: DRUG START DATE:2014 OR 2015
     Route: 065

REACTIONS (3)
  - Hypoaesthesia [Unknown]
  - Treatment noncompliance [Unknown]
  - Blood glucose increased [Unknown]
